FAERS Safety Report 15569189 (Version 1)
Quarter: 2018Q4

REPORT INFORMATION
  Report Type: Spontaneous
  Country: JP (occurrence: JP)
  Receive Date: 20181031
  Receipt Date: 20181031
  Transmission Date: 20190205
  Serious: No
  Sender: FDA-Public Use
  Company Number: JP-LUPIN PHARMACEUTICALS INC.-2018-06228

PATIENT

DRUGS (2)
  1. HYDROXYCHLOROQUINE [Suspect]
     Active Substance: HYDROXYCHLOROQUINE
     Indication: CUTANEOUS LUPUS ERYTHEMATOSUS
     Dosage: UNK
     Route: 065
  2. HYDROXYCHLOROQUINE [Suspect]
     Active Substance: HYDROXYCHLOROQUINE
     Dosage: RESTARTED FROM 1/10 DOSE AND INCREASED TO THE STANDARD DOSE
     Route: 065

REACTIONS (2)
  - Eosinophilia [Recovered/Resolved]
  - Rash maculo-papular [Recovered/Resolved]
